FAERS Safety Report 15543796 (Version 2)
Quarter: 2019Q1

REPORT INFORMATION
  Report Type: Spontaneous
  Country: US (occurrence: US)
  Receive Date: 20181023
  Receipt Date: 20190226
  Transmission Date: 20190417
  Serious: No
  Sender: FDA-Public Use
  Company Number: US-GILEAD-2018-0370463

PATIENT
  Age: 55 Year
  Sex: Male

DRUGS (4)
  1. B1 [Concomitant]
  2. EPCLUSA [Suspect]
     Active Substance: SOFOSBUVIR\VELPATASVIR
     Indication: CHRONIC HEPATITIS C
     Dosage: 1 DF, UNK
     Route: 048
     Dates: start: 20181009, end: 20190101
  3. IBUPROFEN. [Concomitant]
     Active Substance: IBUPROFEN
     Indication: HEADACHE
     Dosage: UNK
  4. MEN^S MULTI [Concomitant]
     Active Substance: VITAMINS

REACTIONS (4)
  - Ocular icterus [Unknown]
  - Somnolence [Unknown]
  - Fatigue [Recovered/Resolved]
  - Headache [Recovered/Resolved]
